FAERS Safety Report 13425452 (Version 1)
Quarter: 2017Q2

REPORT INFORMATION
  Report Type: Spontaneous
  Country: US (occurrence: US)
  Receive Date: 20170411
  Receipt Date: 20170411
  Transmission Date: 20170830
  Serious: No
  Sender: FDA-Public Use
  Company Number: US-LUNDBECK-DKLU2028232

PATIENT
  Sex: Female

DRUGS (3)
  1. LORAZEPAM. [Concomitant]
     Active Substance: LORAZEPAM
     Indication: PRODUCT USED FOR UNKNOWN INDICATION
     Dosage: 0.5
     Route: 065
  2. ESCITALOPRAM [Suspect]
     Active Substance: ESCITALOPRAM OXALATE
     Indication: ANXIETY
     Dosage: 5 MG, UNK
     Route: 065
     Dates: start: 20170310
  3. ESCITALOPRAM [Suspect]
     Active Substance: ESCITALOPRAM OXALATE
     Dosage: 10 MG, UNK
     Route: 065
     Dates: start: 201703

REACTIONS (4)
  - Insomnia [Not Recovered/Not Resolved]
  - Agitation [Not Recovered/Not Resolved]
  - Nervousness [Not Recovered/Not Resolved]
  - Nausea [Not Recovered/Not Resolved]

NARRATIVE: CASE EVENT DATE: 201703
